FAERS Safety Report 4900121-0 (Version None)
Quarter: 2006Q1

REPORT INFORMATION
  Report Type: 
  Country: None (occurrence: None)
  Receive Date: 20060131
  Receipt Date: 20060123
  Transmission Date: 20060701
  Serious: Yes (Hospitalization)
  Sender: FDA-Public Use
  Company Number: US-2006-001568

PATIENT
  Age: 42 Year
  Sex: Male
  Weight: 88.9 kg

DRUGS (1)
  1. MAGNEVIST [Suspect]
     Indication: NUCLEAR MAGNETIC RESONANCE IMAGING
     Dosage: 18 ML, 1 DOSE INTRAVENOS
     Route: 042
     Dates: start: 20060117, end: 20060117

REACTIONS (5)
  - APNOEA [None]
  - CHOKING SENSATION [None]
  - CYANOSIS [None]
  - HYPOXIA [None]
  - THROAT TIGHTNESS [None]
